FAERS Safety Report 5377805-6 (Version None)
Quarter: 2007Q3

REPORT INFORMATION
  Report Type: 
  Country: None (occurrence: None)
  Receive Date: 20070703
  Receipt Date: 20070622
  Transmission Date: 20080115
  Serious: Yes (Hospitalization)
  Sender: FDA-Public Use
  Company Number: DE-PFIZER INC-2007052249

PATIENT
  Age: 29 Year
  Sex: Male

DRUGS (4)
  1. ZELDOX (CAPSULES) [Suspect]
     Indication: BIPOLAR DISORDER
     Dosage: DAILY DOSE:120MG
     Route: 048
     Dates: start: 20070418, end: 20070419
  2. CYMBALTA [Suspect]
     Indication: BIPOLAR DISORDER
     Dosage: DAILY DOSE:120MG
     Route: 048
  3. SEROQUEL [Concomitant]
     Route: 048
  4. LAMOTRIGINE [Concomitant]
     Route: 048

REACTIONS (1)
  - DYSKINESIA [None]
